FAERS Safety Report 4808369-0 (Version None)
Quarter: 2005Q4

REPORT INFORMATION
  Report Type: 
  Country: None (occurrence: None)
  Receive Date: 20051021
  Receipt Date: 20031208
  Transmission Date: 20060501
  Serious: Yes (Hospitalization)
  Sender: FDA-Public Use
  Company Number: JP_031202374

PATIENT
  Age: 56 Year
  Sex: Female
  Weight: 48 kg

DRUGS (12)
  1. ZYPREXA [Suspect]
     Indication: SCHIZOPHRENIA
     Dosage: 5 MG/DAY
     Dates: start: 20030514
  2. ROHIPPNOL (FLUNITRAZEPAM) [Concomitant]
  3. RISPERDAL [Concomitant]
  4. DIAZEPAM [Concomitant]
  5. AMEZINIUM METILSULFATE [Concomitant]
  6. BROTIZOLAM [Concomitant]
  7. HIRNAMIN (LEVOMEPROMAZINE) [Concomitant]
  8. CHLORPROMAZINE HCL [Concomitant]
  9. DEPAS (ETIZOLAM) [Concomitant]
  10. DIHYDERGOT (DIHYDROEERGOTAMINE MESILATE) [Concomitant]
  11. EFFORTIL (ETILEPRINE HYDROCHLORIDE) [Concomitant]
  12. MAGNESIUM OXIDE [Concomitant]

REACTIONS (8)
  - CHEST PAIN [None]
  - DISEASE RECURRENCE [None]
  - LEUKOPENIA [None]
  - SCHIZOPHRENIA [None]
  - SOMNOLENCE [None]
  - STOMACH DISCOMFORT [None]
  - STUPOR [None]
  - TENSION [None]
